FAERS Safety Report 9270156 (Version 1)
Quarter: 2013Q2

REPORT INFORMATION
  Report Type: Spontaneous
  Country: JP (occurrence: JP)
  Receive Date: 20130503
  Receipt Date: 20130503
  Transmission Date: 20140414
  Serious: Yes (Death, Other)
  Sender: FDA-Public Use
  Company Number: JP-OTSUKA-JP-2013-11145

PATIENT
  Age: 80 Year
  Sex: Female

DRUGS (2)
  1. PLETAAL [Suspect]
     Route: 048
  2. ASPIRIN [Suspect]
     Route: 048

REACTIONS (2)
  - Cerebral infarction [Fatal]
  - Haemorrhage urinary tract [Recovered/Resolved]
